FAERS Safety Report 9351917 (Version 1)
Quarter: 2013Q2

REPORT INFORMATION
  Report Type: Spontaneous
  Country: FR (occurrence: FR)
  Receive Date: 20130617
  Receipt Date: 20130617
  Transmission Date: 20140414
  Serious: Yes (Other)
  Sender: FDA-Public Use
  Company Number: FR-GLAXOSMITHKLINE-B0898671A

PATIENT
  Age: 87 Year
  Sex: Female

DRUGS (8)
  1. DEROXAT [Suspect]
     Indication: DEPRESSION
     Dosage: 20MG PER DAY
     Route: 048
     Dates: start: 20121207, end: 20121215
  2. CONTRAMAL [Suspect]
     Indication: PRODUCT USED FOR UNKNOWN INDICATION
     Dosage: 100MG TWICE PER DAY
     Route: 048
     Dates: start: 20121214, end: 20121215
  3. LEXOMIL [Suspect]
     Indication: PRODUCT USED FOR UNKNOWN INDICATION
     Dosage: 3MG TWICE PER DAY
     Route: 048
     Dates: end: 20121215
  4. DUROGESIC [Concomitant]
     Dosage: 12MCG EVERY 3 DAYS
     Route: 062
  5. LERCAN [Concomitant]
     Indication: HYPERTENSION
     Dosage: 10MG PER DAY
     Route: 048
  6. PARIET [Concomitant]
     Dosage: 20MG PER DAY
     Route: 048
  7. PERINDOPRIL [Concomitant]
     Indication: HYPERTENSION
     Dosage: 4MG PER DAY
     Route: 048
  8. LEVOTHYROX [Concomitant]
     Dosage: 25MCG PER DAY
     Route: 048

REACTIONS (1)
  - Persecutory delusion [Recovered/Resolved]
